FAERS Safety Report 8514342-1 (Version None)
Quarter: 2012Q2

REPORT INFORMATION
  Report Type: 
  Country: None (occurrence: None)
  Receive Date: 20120406
  Receipt Date: 20111221
  Transmission Date: 20120825
  Serious: Yes (Hospitalization)
  Sender: FDA-Public Use
  Company Number: US-CYPR-2011-000086

PATIENT
  Sex: Male
  Weight: 104.3273 kg

DRUGS (7)
  1. DIOVAN [Concomitant]
  2. SIMVASTATIN [Concomitant]
  3. CYPHER STENT [Concomitant]
  4. HYDROCHLOROTHIAZIDE [Concomitant]
  5. CLOPIDOGREL [Suspect]
     Indication: ANTIPLATELET THERAPY
     Dosage: (75 MG ORAL), (75 MG ORAL)
     Route: 048
     Dates: start: 20110406, end: 20111107
  6. CLOPIDOGREL [Suspect]
     Indication: ANTIPLATELET THERAPY
     Dosage: (75 MG ORAL), (75 MG ORAL)
     Route: 048
     Dates: start: 20111119
  7. ALLOPURINOL [Concomitant]

REACTIONS (1)
  - LUMBAR SPINAL STENOSIS [None]
